FAERS Safety Report 15875153 (Version 1)
Quarter: 2019Q1

REPORT INFORMATION
  Report Type: Other
  Country: US (occurrence: US)
  Receive Date: 20190126
  Receipt Date: 20190126
  Transmission Date: 20190417
  Serious: No
  Sender: FDA-Public Use
  Company Number: US-ACORDA-ACO_153406_2018

PATIENT
  Age: 75 Year
  Sex: Female

DRUGS (3)
  1. AMPYRA [Suspect]
     Active Substance: DALFAMPRIDINE
     Indication: GAIT DISTURBANCE
  2. MOTRIN [Suspect]
     Active Substance: IBUPROFEN
     Indication: JOINT INJURY
     Dosage: 400-800 MG QD
     Route: 065
     Dates: start: 201808
  3. AMPYRA [Suspect]
     Active Substance: DALFAMPRIDINE
     Indication: MULTIPLE SCLEROSIS
     Dosage: 10 MG, Q 12 HRS
     Route: 048
     Dates: start: 20111112

REACTIONS (6)
  - Blood pressure increased [Unknown]
  - Fluid intake reduced [Unknown]
  - Fatigue [Unknown]
  - Joint injury [Unknown]
  - Swelling [Unknown]
  - Stress [Unknown]

NARRATIVE: CASE EVENT DATE: 20180821
